FAERS Safety Report 18134230 (Version 1)
Quarter: 2020Q3

REPORT INFORMATION
  Report Type: Report from Study
  Country: BR (occurrence: BR)
  Receive Date: 20200811
  Receipt Date: 20200811
  Transmission Date: 20201103
  Serious: Yes (Death, Hospitalization, Other)
  Sender: FDA-Public Use
  Company Number: BR-JNJFOC-20200804174

PATIENT
  Age: 59 Year
  Sex: Male
  Weight: 72 kg

DRUGS (2)
  1. REMICADE [Suspect]
     Active Substance: INFLIXIMAB
     Indication: ANKYLOSING SPONDYLITIS
     Route: 042
     Dates: start: 201901
  2. LOSARTAN. [Concomitant]
     Active Substance: LOSARTAN
     Indication: HYPERTENSION

REACTIONS (5)
  - Death [Fatal]
  - Diabetes mellitus [Unknown]
  - Pain in extremity [Unknown]
  - Pyrexia [Unknown]
  - Tuberculosis [Unknown]

NARRATIVE: CASE EVENT DATE: 2019
